FAERS Safety Report 10005762 (Version 2)
Quarter: 2014Q2

REPORT INFORMATION
  Report Type: Spontaneous
  Country: US (occurrence: US)
  Receive Date: 20140313
  Receipt Date: 20140423
  Transmission Date: 20141212
  Serious: No
  Sender: FDA-Public Use
  Company Number: US-BIOGENIDEC-2014BI021418

PATIENT
  Age: 71 Year
  Sex: Female

DRUGS (6)
  1. TECFIDERA [Suspect]
     Indication: MULTIPLE SCLEROSIS
     Route: 048
  2. AMLODIPINE BESY-BENAZEPRIL HCL [Concomitant]
  3. COREG [Concomitant]
  4. LOSARTAN POTASSIUM [Concomitant]
  5. ASPIR-LOW [Concomitant]
  6. TYLENOL [Concomitant]

REACTIONS (3)
  - Constipation [Unknown]
  - Flushing [Unknown]
  - Pruritus [Unknown]
